FAERS Safety Report 8222137-1 (Version None)
Quarter: 2012Q1

REPORT INFORMATION
  Report Type: 
  Country: None (occurrence: None)
  Receive Date: 20120307
  Receipt Date: 20110505
  Transmission Date: 20120608
  Serious: Yes (Hospitalization, Other)
  Sender: FDA-Public Use
  Company Number: PHHY2011US38098

PATIENT
  Age: 56 Year
  Sex: Female

DRUGS (1)
  1. AFINITOR [Suspect]
     Indication: MALIGNANT SOFT TISSUE NEOPLASM
     Dosage: 10 MG, OD, ORAL
     Route: 048
     Dates: start: 20110301, end: 20110422

REACTIONS (2)
  - NEOPLASM MALIGNANT [None]
  - RENAL FAILURE [None]
